FAERS Safety Report 9501510 (Version 4)
Quarter: 2013Q4

REPORT INFORMATION
  Report Type: Spontaneous
  Country: FR (occurrence: FR)
  Receive Date: 20130905
  Receipt Date: 20131003
  Transmission Date: 20140711
  Serious: Yes (Death, Life-Threatening, Hospitalization, Other)
  Sender: FDA-Public Use
  Company Number: FR-PFIZER INC-2013251576

PATIENT
  Age: 72 Year
  Sex: Male

DRUGS (20)
  1. TORISEL [Suspect]
     Indication: RENAL CANCER
     Dosage: 25 MG, SINGLE
     Route: 041
     Dates: start: 20130531, end: 20130531
  2. MERONEM [Suspect]
     Indication: URINARY TRACT INFECTION
     Dosage: 1 G, 2X/DAY
     Route: 042
     Dates: start: 20130524, end: 20130613
  3. ADVAGRAF [Suspect]
     Dosage: 1 MG, 1X/DAY
     Route: 048
  4. ZOVIRAX [Concomitant]
     Indication: MUCOSAL INFLAMMATION
     Dosage: UNK
     Dates: start: 20130614
  5. AMLOR [Concomitant]
     Dosage: UNK
  6. RAMIPRIL [Concomitant]
     Dosage: UNK
  7. CARDENSIEL [Concomitant]
     Dosage: UNK
  8. KARDEGIC [Concomitant]
     Dosage: UNK
  9. INEXIUM [Concomitant]
     Dosage: UNK
  10. ELISOR [Concomitant]
     Dosage: UNK
  11. UROREC [Concomitant]
     Dosage: UNK
  12. VENTOLINE [Concomitant]
     Dosage: UNK
  13. MYFORTIC [Concomitant]
     Dosage: UNK
  14. TAVANIC [Concomitant]
     Dosage: UNK
     Dates: start: 20130513, end: 20130515
  15. ROCEPHINE [Concomitant]
     Dosage: UNK
     Dates: start: 20130520, end: 20130523
  16. LOXEN [Concomitant]
     Dosage: UNK
     Dates: start: 20130521
  17. FUROSEMIDE [Concomitant]
     Dosage: UNK
     Dates: start: 20130601, end: 20130603
  18. ACUPAN [Concomitant]
     Dosage: UNK
     Dates: start: 20130516, end: 20130606
  19. INVANZ [Concomitant]
     Dosage: 1 G, /24H
     Dates: start: 20130523, end: 20130524
  20. AMIKACIN [Concomitant]
     Dosage: 15 MG/KG, UNK
     Dates: start: 20130523

REACTIONS (6)
  - Death [Fatal]
  - Thrombotic microangiopathy [Unknown]
  - Bronchial obstruction [Unknown]
  - Disease progression [Unknown]
  - Renal cancer [Unknown]
  - Herpes virus infection [Unknown]
